FAERS Safety Report 7513854-7 (Version None)
Quarter: 2011Q2

REPORT INFORMATION
  Report Type: 
  Country: None (occurrence: None)
  Receive Date: 20110531
  Receipt Date: 20110519
  Transmission Date: 20111010
  Serious: Yes (Other)
  Sender: FDA-Public Use
  Company Number: PHHY2011CA43130

PATIENT
  Age: 83 Year
  Sex: Male

DRUGS (1)
  1. ZOMETA [Suspect]
     Indication: PROSTATE CANCER
     Dosage: UNK

REACTIONS (5)
  - TINNITUS [None]
  - PAIN [None]
  - OSTEOLYSIS [None]
  - DEAFNESS [None]
  - OSTEONECROSIS OF JAW [None]
